FAERS Safety Report 4753433-8 (Version None)
Quarter: 2005Q3

REPORT INFORMATION
  Report Type: 
  Country: None (occurrence: None)
  Receive Date: 20050824
  Receipt Date: 20050816
  Transmission Date: 20060218
  Serious: Yes (Life-Threatening, Hospitalization)
  Sender: FDA-Public Use
  Company Number: 430024N05FRA

PATIENT
  Age: 61 Year
  Sex: Female

DRUGS (5)
  1. NOVANTRONE [Suspect]
     Indication: MULTIPLE SCLEROSIS
     Dosage: INTRAVENOUS (NOT OTHERWISE SPECIFIED); 15 MG, 1 IN 1 DAYS, INTRAVENOUS (NOT OTHERWISE SPECIFIED)
     Route: 042
     Dates: start: 20000428, end: 20000428
  2. NOVANTRONE [Suspect]
     Indication: MULTIPLE SCLEROSIS
     Dosage: INTRAVENOUS (NOT OTHERWISE SPECIFIED); 15 MG, 1 IN 1 DAYS, INTRAVENOUS (NOT OTHERWISE SPECIFIED)
     Route: 042
     Dates: start: 20011026, end: 20011026
  3. DITROPAN (OXYBUTYNIN / 00538901/) [Concomitant]
  4. LIORESAL [Concomitant]
  5. INTERFERON BETA (INTERFERON BETA) [Concomitant]

REACTIONS (6)
  - ACUTE PROMYELOCYTIC LEUKAEMIA [None]
  - ASTHENIA [None]
  - EPISTAXIS [None]
  - GINGIVAL BLEEDING [None]
  - HAEMATOMA [None]
  - PANCYTOPENIA [None]
